FAERS Safety Report 16758172 (Version 1)
Quarter: 2019Q3

REPORT INFORMATION
  Report Type: Spontaneous
  Country: FR (occurrence: FR)
  Receive Date: 20190830
  Receipt Date: 20190830
  Transmission Date: 20191005
  Serious: Yes (Death)
  Sender: FDA-Public Use
  Company Number: FR-TEVA-2019-FR-1099677

PATIENT
  Age: 82 Year
  Sex: Male
  Weight: 88 kg

DRUGS (22)
  1. TRIATEC [RAMIPRIL] [Suspect]
     Active Substance: RAMIPRIL
     Indication: HYPERTENSION
     Dosage: 5 MG
     Route: 048
     Dates: end: 20190722
  2. SKENAN [Concomitant]
     Active Substance: MORPHINE SULFATE
  3. SMECTA [Concomitant]
     Active Substance: MONTMORILLONITE
  4. ACUPAN [Suspect]
     Active Substance: NEFOPAM HYDROCHLORIDE
     Indication: BACK PAIN
     Dosage: 4 DF
     Route: 065
     Dates: start: 20190708, end: 20190716
  5. PROCORALAN 5 MG, COMPRIME PELLICULE [Concomitant]
     Active Substance: IVABRADINE HYDROCHLORIDE
  6. ACTISKENAN [Concomitant]
     Active Substance: MORPHINE SULFATE
  7. PAMIDRONATE DE SODIUM [Suspect]
     Active Substance: PAMIDRONATE DISODIUM
     Indication: SPINAL FRACTURE
     Dosage: 30 MG
     Route: 042
     Dates: start: 20190720, end: 20190722
  8. EPINITRIL 5 MG/24 HEURES, DISPOSITIF TRANSDERMIQUE [Concomitant]
  9. STILNOX 10 MG, COMPRIME PELLICULE SECABLE [Concomitant]
     Active Substance: ZOLPIDEM TARTRATE
  10. SPECIAFOLDINE 5 MG, COMPRIME [Concomitant]
     Active Substance: FOLIC ACID
  11. XANAX [Concomitant]
     Active Substance: ALPRAZOLAM
  12. ESOMEPRAZOLE. [Suspect]
     Active Substance: ESOMEPRAZOLE MAGNESIUM
     Indication: PRODUCT USED FOR UNKNOWN INDICATION
     Dosage: 40 MG
     Route: 048
     Dates: end: 20190722
  13. KETOPROFEN. [Suspect]
     Active Substance: KETOPROFEN
     Indication: BACK PAIN
     Dosage: 200 MG
     Route: 048
     Dates: start: 20190708, end: 20190716
  14. EFFEXOR 75 MG, COMPRIME [Concomitant]
  15. TIMOFEROL, GELULE [Concomitant]
     Active Substance: ASCORBIC ACID\FERROUS SULFATE
  16. UROREC 8 MG, GELULE [Concomitant]
     Active Substance: SILODOSIN
  17. DAFALGAN [Concomitant]
     Active Substance: ACETAMINOPHEN
  18. KARDEGIC [Suspect]
     Active Substance: ASPIRIN DL-LYSINE
     Indication: PRODUCT USED FOR UNKNOWN INDICATION
     Dosage: 75 MG
     Route: 048
     Dates: end: 20190722
  19. LOVENOX [Concomitant]
     Active Substance: ENOXAPARIN SODIUM
  20. ABASAGLAR [Concomitant]
     Active Substance: INSULIN GLARGINE
  21. CYANOCOBALAMINE [Concomitant]
     Active Substance: CYANOCOBALAMIN
  22. LASILIX 40 MG, COMPRIME SECABLE [Concomitant]
     Active Substance: FUROSEMIDE

REACTIONS (2)
  - Condition aggravated [Fatal]
  - Acute kidney injury [Fatal]

NARRATIVE: CASE EVENT DATE: 20190716
